FAERS Safety Report 6030634-2 (Version None)
Quarter: 2009Q1

REPORT INFORMATION
  Report Type: 
  Country: None (occurrence: None)
  Receive Date: 20090106
  Receipt Date: 20090106
  Transmission Date: 20090719
  Serious: Yes (Disabling, Other)
  Sender: FDA-Public Use
  Company Number: None

PATIENT
  Age: 56 Year
  Sex: Female
  Weight: 68.0396 kg

DRUGS (1)
  1. IQUIX [Suspect]
     Indication: BLEPHARITIS
     Dosage: 1 DROP EVERY 2 HRS FOR OPTHALMIC 2 DAYS, THEN QID
     Route: 047
     Dates: start: 20081231, end: 20081231

REACTIONS (6)
  - BLINDNESS UNILATERAL [None]
  - CRYING [None]
  - EYE IRRITATION [None]
  - EYE SWELLING [None]
  - PAIN [None]
  - VISION BLURRED [None]
